FAERS Safety Report 6367784-7 (Version None)
Quarter: 2009Q3

REPORT INFORMATION
  Report Type: 
  Country: None (occurrence: None)
  Receive Date: 20090921
  Receipt Date: 20090910
  Transmission Date: 20100115
  Serious: Yes (Disabling)
  Sender: FDA-Public Use
  Company Number: CO-ELI_LILLY_AND_COMPANY-CO200909002850

PATIENT
  Age: 77 Year
  Sex: Female

DRUGS (11)
  1. FORTEO [Suspect]
     Indication: OSTEOPOROSIS
     Dosage: 20 UG, DAILY (1/D)
     Route: 058
     Dates: start: 20090820
  2. OXYGEN [Concomitant]
     Dosage: UNK, UNKNOWN
     Route: 065
  3. SALBUTAMOL [Concomitant]
     Dosage: UNK, UNKNOWN
     Route: 065
  4. SYMBICORT [Concomitant]
     Dosage: UNK, UNKNOWN
     Route: 065
  5. SPIRIVA [Concomitant]
     Dosage: UNK, UNKNOWN
     Route: 065
  6. THEOPHYLLINE [Concomitant]
     Dosage: UNK, UNKNOWN
     Route: 065
  7. FUROSEMIDE [Concomitant]
     Dosage: UNK, UNKNOWN
     Route: 065
  8. DEFLAZACORT [Concomitant]
     Dosage: UNK, UNKNOWN
     Route: 065
  9. LOSARTAN [Concomitant]
     Dosage: UNK, UNKNOWN
     Route: 065
  10. OMEPRAZOL [Concomitant]
     Dosage: UNK, UNKNOWN
     Route: 065
  11. SPIRONOLACTONE [Concomitant]
     Dosage: UNK, UNKNOWN
     Route: 065

REACTIONS (6)
  - BONE PAIN [None]
  - DECREASED APPETITE [None]
  - DIARRHOEA [None]
  - DISABILITY [None]
  - FATIGUE [None]
  - SOMNOLENCE [None]
